FAERS Safety Report 11123742 (Version 1)
Quarter: 2015Q2

REPORT INFORMATION
  Report Type: Spontaneous
  Country: US (occurrence: US)
  Receive Date: 20150519
  Receipt Date: 20150519
  Transmission Date: 20150821
  Serious: No
  Sender: FDA-Public Use
  Company Number: US-ELI_LILLY_AND_COMPANY-US201504006919

PATIENT
  Sex: Male

DRUGS (3)
  1. CELEXA [Concomitant]
     Active Substance: CITALOPRAM HYDROBROMIDE
     Indication: PRODUCT USED FOR UNKNOWN INDICATION
     Dosage: UNK, UNKNOWN
     Route: 065
  2. CIALIS [Suspect]
     Active Substance: TADALAFIL
     Indication: ERECTILE DYSFUNCTION
     Dosage: 5 MG, QD
     Route: 065
     Dates: start: 2014, end: 201502
  3. CIALIS [Suspect]
     Active Substance: TADALAFIL
     Indication: MIGRAINE
     Dosage: 10 OR 20 MG , PRN
     Route: 065

REACTIONS (2)
  - Paranasal sinus discomfort [Not Recovered/Not Resolved]
  - Drug prescribing error [Unknown]
